FAERS Safety Report 14304929 (Version 1)
Quarter: 2017Q4

REPORT INFORMATION
  Report Type: Spontaneous
  Country: JP (occurrence: JP)
  Receive Date: 20171219
  Receipt Date: 20171219
  Transmission Date: 20180321
  Serious: Yes (Hospitalization, Other)
  Sender: FDA-Public Use
  Company Number: JP-OTSUKA-001387

PATIENT

DRUGS (13)
  1. ABILIFY [Suspect]
     Active Substance: ARIPIPRAZOLE
     Dosage: 18 MG, QD
     Route: 048
     Dates: start: 20080521, end: 20080603
  2. ABILIFY [Suspect]
     Active Substance: ARIPIPRAZOLE
     Indication: SCHIZOPHRENIA
     Dosage: 12 MG, QD
     Route: 048
     Dates: start: 20080507, end: 20080520
  3. SENNAL [Concomitant]
     Dosage: 24 MG, QD
     Route: 048
     Dates: start: 20061108
  4. ABILIFY [Suspect]
     Active Substance: ARIPIPRAZOLE
     Dosage: 24 MG, QD
     Route: 048
     Dates: start: 20080604, end: 20080611
  5. TRIAZOLAM. [Concomitant]
     Active Substance: TRIAZOLAM
     Dosage: TABLET.
  6. SENNA [Concomitant]
     Active Substance: SENNA LEAF\SENNOSIDES\SENNOSIDES A AND B
     Dosage: TABLET.
     Dates: start: 20061108
  7. CHLORPROMAZINE HCL [Concomitant]
     Active Substance: CHLORPROMAZINE HYDROCHLORIDE
     Dosage: 50 MG, QD
  8. LEVOMEPROMAZINE [Concomitant]
     Active Substance: LEVOMEPROMAZINE
     Dosage: 50 MG, QD
  9. ZYPREXA [Suspect]
     Active Substance: OLANZAPINE
     Dosage: 2.5 MG, QD
     Route: 048
     Dates: start: 20080520, end: 20080603
  10. HALCION [Concomitant]
     Active Substance: TRIAZOLAM
     Indication: INSOMNIA
     Dosage: 0.25 MG, QD
     Route: 048
  11. OLANZAPINE. [Suspect]
     Active Substance: OLANZAPINE
     Indication: SCHIZOPHRENIA
     Dosage: ZYPREXA TABLET 2.5MG  07MAY08 TO 20MAY08: 7.5MG/DAY  20MAY08 TO 03JUN08: 2.5MG/DAY.
     Route: 048
     Dates: start: 20071107, end: 20080603
  12. DORAL [Concomitant]
     Active Substance: QUAZEPAM
     Indication: INSOMNIA
     Dosage: 15 MG, QD
     Route: 048
     Dates: start: 20070523
  13. ZYPREXA [Suspect]
     Active Substance: OLANZAPINE
     Indication: SCHIZOPHRENIA
     Dosage: 7.5 MG, QD
     Route: 048
     Dates: start: 20071107, end: 20080520

REACTIONS (1)
  - Generalised tonic-clonic seizure [Recovered/Resolved]

NARRATIVE: CASE EVENT DATE: 20080611
